FAERS Safety Report 7551100-9 (Version None)
Quarter: 2011Q2

REPORT INFORMATION
  Report Type: 
  Country: None (occurrence: None)
  Receive Date: 20110616
  Receipt Date: 20110608
  Transmission Date: 20111010
  Serious: Yes (Hospitalization)
  Sender: FDA-Public Use
  Company Number: DK-NOVOPROD-322114

PATIENT
  Sex: Female

DRUGS (2)
  1. VICTOZA [Suspect]
     Dosage: 1.2 MG, QD
     Route: 058
     Dates: end: 20100921
  2. VICTOZA [Suspect]
     Indication: TYPE 2 DIABETES MELLITUS
     Dosage: 1.2 MG, QD
     Route: 058
     Dates: start: 20100910, end: 20100921

REACTIONS (8)
  - DIARRHOEA [None]
  - NAUSEA [None]
  - HEADACHE [None]
  - RASH [None]
  - ABDOMINAL DISCOMFORT [None]
  - THROAT TIGHTNESS [None]
  - ANGIOEDEMA [None]
  - CHEST DISCOMFORT [None]
